FAERS Safety Report 17242690 (Version 2)
Quarter: 2020Q1

REPORT INFORMATION
  Report Type: Spontaneous
  Country: US (occurrence: US)
  Receive Date: 20200107
  Receipt Date: 20200131
  Transmission Date: 20200409
  Serious: No
  Sender: FDA-Public Use
  Company Number: US-VERTEX PHARMACEUTICALS-2019-013863

PATIENT
  Sex: Female

DRUGS (20)
  1. PHYTONADIONE. [Concomitant]
     Active Substance: PHYTONADIONE
  2. TOBRAMYCIN. [Concomitant]
     Active Substance: TOBRAMYCIN
  3. MONTELUKAST [Concomitant]
     Active Substance: MONTELUKAST SODIUM
  4. HUMALOG [Concomitant]
     Active Substance: INSULIN LISPRO
  5. BETHANECHOL [Concomitant]
     Active Substance: BETHANECHOL
  6. OSCAL D [Concomitant]
     Active Substance: CALCIUM CARBONATE\CHOLECALCIFEROL
  7. PULMOZYME [Concomitant]
     Active Substance: DORNASE ALFA
  8. ADVAIR HFA [Concomitant]
     Active Substance: FLUTICASONE PROPIONATE\SALMETEROL XINAFOATE
  9. ZENPEP [Concomitant]
     Active Substance: PANCRELIPASE AMYLASE\PANCRELIPASE LIPASE\PANCRELIPASE PROTEASE
  10. ATENOLOL. [Concomitant]
     Active Substance: ATENOLOL
  11. SODIUM CHLORIDE. [Concomitant]
     Active Substance: SODIUM CHLORIDE
  12. AZITHROMYCIN ANHYDROUS. [Concomitant]
     Active Substance: AZITHROMYCIN ANHYDROUS
  13. VITAMIN D3 [Concomitant]
     Active Substance: CHOLECALCIFEROL
  14. CAYSTON [Concomitant]
     Active Substance: AZTREONAM
  15. ALBUTEROL [SALBUTAMOL] [Concomitant]
     Active Substance: ALBUTEROL
  16. FLUTICASONE. [Concomitant]
     Active Substance: FLUTICASONE
  17. LANSOPRAZOLE. [Concomitant]
     Active Substance: LANSOPRAZOLE
  18. PEG [PREGABALIN] [Concomitant]
  19. TRIKAFTA [Suspect]
     Active Substance: ELEXACAFTOR\IVACAFTOR\TEZACAFTOR
     Indication: CYSTIC FIBROSIS
     Dosage: 100 MG ELEXACAFTOR/50 MG TEZACAFTOR/ 75 MG IVACAFTOR AM AND 150 MG IVACAFTOR PM
     Route: 048
     Dates: start: 201912
  20. SALINE NASAL MIST [Concomitant]

REACTIONS (2)
  - Cough [Recovered/Resolved]
  - Dry skin [Unknown]

NARRATIVE: CASE EVENT DATE: 2019
